FAERS Safety Report 7473277-6 (Version None)
Quarter: 2011Q1

REPORT INFORMATION
  Report Type: 
  Country: None (occurrence: None)
  Receive Date: 20110302
  Receipt Date: 20101117
  Transmission Date: 20110831
  Serious: Yes (Other)
  Sender: FDA-Public Use
  Company Number: 163-21880-10112207

PATIENT
  Age: 62 Year
  Sex: Female
  Weight: 65.7716 kg

DRUGS (4)
  1. ATENOLOL [Concomitant]
  2. GLUCOSAMINE SULFATE (GLUCOSAMINE SULFATE) [Concomitant]
  3. REVLIMID [Suspect]
     Indication: MULTIPLE MYELOMA
     Dosage: 25 MG, DAILY X 21 DAYS, PO
     Route: 048
     Dates: start: 20101029, end: 20101101
  4. DEXAMETHASONE [Concomitant]

REACTIONS (2)
  - PLATELET COUNT INCREASED [None]
  - RASH ERYTHEMATOUS [None]
